FAERS Safety Report 5199187-5 (Version None)
Quarter: 2006Q4

REPORT INFORMATION
  Report Type: 
  Country: None (occurrence: None)
  Receive Date: 20061016
  Receipt Date: 20060619
  Transmission Date: 20070319
  Serious: No
  Sender: FDA-Public Use
  Company Number: 2006SP000026

PATIENT
  Age: 50 Year
  Sex: Female
  Weight: 104.3273 kg

DRUGS (2)
  1. LUNESTA [Suspect]
     Indication: INSOMNIA
     Dosage: 3 MG;QD;ORAL
     Route: 048
     Dates: start: 20060401
  2. NEXIUM [Concomitant]

REACTIONS (3)
  - ABNORMAL DREAMS [None]
  - AMNESIA [None]
  - DYSGEUSIA [None]
